FAERS Safety Report 19074629 (Version 1)
Quarter: 2021Q1

REPORT INFORMATION
  Report Type: Spontaneous
  Country: US (occurrence: US)
  Receive Date: 20210330
  Receipt Date: 20210330
  Transmission Date: 20210420
  Serious: No
  Sender: FDA-Public Use
  Company Number: US-ROCHE-2688172

PATIENT
  Sex: Male
  Weight: 154.36 kg

DRUGS (2)
  1. ERIVEDGE [Suspect]
     Active Substance: VISMODEGIB
     Indication: BASAL CELL CARCINOMA
     Route: 048
     Dates: start: 20190503, end: 202006
  2. IMIQUIMOD. [Concomitant]
     Active Substance: IMIQUIMOD
     Dosage: 5% APPLIES DAILY
     Route: 061
     Dates: start: 202009

REACTIONS (1)
  - Muscle spasms [Recovered/Resolved]
